FAERS Safety Report 6243457-6 (Version None)
Quarter: 2009Q2

REPORT INFORMATION
  Report Type: 
  Country: None (occurrence: None)
  Receive Date: 20090624
  Receipt Date: 20090615
  Transmission Date: 20091009
  Serious: Yes (Other)
  Sender: FDA-Public Use
  Company Number: US-AVENTIS-200915270US

PATIENT
  Age: 81 Year
  Sex: Female

DRUGS (4)
  1. LANTUS [Suspect]
     Indication: BLOOD GLUCOSE ABNORMAL
     Route: 058
  2. LANTUS [Suspect]
     Dosage: DOSE: 3-4
     Route: 058
     Dates: start: 20090501
  3. COUMADIN [Suspect]
     Dosage: DOSE: UNK
     Dates: start: 20090501
  4. NOVOLOG [Suspect]
     Dosage: DOSE: UNK

REACTIONS (6)
  - BLOOD GLUCOSE DECREASED [None]
  - FALL [None]
  - HYPERHIDROSIS [None]
  - HYPOGLYCAEMIC UNCONSCIOUSNESS [None]
  - LOSS OF CONSCIOUSNESS [None]
  - WRIST FRACTURE [None]
